FAERS Safety Report 11689233 (Version 2)
Quarter: 2016Q2

REPORT INFORMATION
  Report Type: Spontaneous
  Country: FR (occurrence: FR)
  Receive Date: 20151102
  Receipt Date: 20160527
  Transmission Date: 20160815
  Serious: Yes (Life-Threatening, Hospitalization)
  Sender: FDA-Public Use
  Company Number: FR-009507513-1510FRA015156

PATIENT
  Age: 65 Year
  Sex: Female

DRUGS (14)
  1. THERALENE [Suspect]
     Active Substance: TRIMEPRAZINE
     Dosage: 50 DROPS AT BEDTIME
  2. HALDOL [Suspect]
     Active Substance: HALOPERIDOL
     Dosage: 2 MG, 0-0-1-0
  3. SERESTA [Suspect]
     Active Substance: OXAZEPAM
     Dosage: 10 MG, 1-1-1-1
  4. NORSET [Suspect]
     Active Substance: MIRTAZAPINE
     Dosage: 15 MG, 0-0-3-0
     Route: 048
  5. COUMADIN [Suspect]
     Active Substance: WARFARIN SODIUM
     Dosage: 5 MG, 1-0-0-0
  6. ACUPAN [Suspect]
     Active Substance: NEFOPAM HYDROCHLORIDE
     Dosage: IF NEEDED
  7. FOLINIC ACID [Suspect]
     Active Substance: LEUCOVORIN
     Dosage: 5 MG, 2-0-0-0
  8. AMLOR [Suspect]
     Active Substance: AMLODIPINE BESYLATE
     Dosage: 5 MG, 2-0-0-0
  9. LANZOPRAZOL [Suspect]
     Active Substance: LANSOPRAZOLE
     Dosage: 15 MG, 0-0-1-0
  10. IXPRIM (ACETAMINOPHEN (+) TRAMADOL HYDROCHLORIDE) [Suspect]
     Active Substance: ACETAMINOPHEN\TRAMADOL
     Dosage: 37.5 MG, 2-0-2-0
  11. TRILEPTAL [Suspect]
     Active Substance: OXCARBAZEPINE
     Dosage: 300 MG, 2-0-3-0
  12. ESIDREX [Suspect]
     Active Substance: HYDROCHLOROTHIAZIDE
     Dosage: 25 MG, 1/2-0-0-0
  13. TAHOR [Suspect]
     Active Substance: ATORVASTATIN CALCIUM
     Dosage: 10 MG, 0-0-2-0
  14. ACETAMINOPHEN. [Suspect]
     Active Substance: ACETAMINOPHEN
     Dosage: 500 MG, TID

REACTIONS (5)
  - Coma [Recovered/Resolved]
  - Hypotension [Recovered/Resolved]
  - Cardio-respiratory arrest [Recovered/Resolved]
  - Bradycardia [Recovered/Resolved]
  - Toxicity to various agents [Recovered/Resolved]

NARRATIVE: CASE EVENT DATE: 20150422
